FAERS Safety Report 7933883-9 (Version None)
Quarter: 2012Q1

REPORT INFORMATION
  Report Type: 
  Country: None (occurrence: None)
  Receive Date: 20111118
  Receipt Date: 20111108
  Transmission Date: 20120608
  Serious: No
  Sender: FDA-Public Use
  Company Number: USA/USA/11/0021874

PATIENT
  Sex: Male

DRUGS (1)
  1. AMLODIPINE BESYLATE AND BENAZEPRIL HCL [Suspect]
     Indication: PRODUCT USED FOR UNKNOWN INDICATION
     Dosage: 15 MG, 1 D, ORAL
     Route: 048
     Dates: start: 20110614

REACTIONS (3)
  - SYNCOPE [None]
  - DIZZINESS [None]
  - LOSS OF CONSCIOUSNESS [None]
